FAERS Safety Report 7038701-1 (Version None)
Quarter: 2010Q4

REPORT INFORMATION
  Report Type: 
  Country: None (occurrence: None)
  Receive Date: 20101012
  Receipt Date: 20091229
  Transmission Date: 20110411
  Serious: No
  Sender: FDA-Public Use
  Company Number: US-ALLERGAN-0917649US

PATIENT
  Age: 44 Year
  Sex: Female

DRUGS (1)
  1. ELIMITE [Suspect]
     Indication: ACARODERMATITIS
     Dosage: UNK
     Route: 061

REACTIONS (6)
  - ABDOMINAL DISCOMFORT [None]
  - ABDOMINAL DISTENSION [None]
  - DIZZINESS [None]
  - NAUSEA [None]
  - PRURITUS [None]
  - RASH [None]
